FAERS Safety Report 22606699 (Version 1)
Quarter: 2023Q2

REPORT INFORMATION
  Report Type: Report from Study
  Country: FR (occurrence: FR)
  Receive Date: 20230615
  Receipt Date: 20230615
  Transmission Date: 20230721
  Serious: Yes (Hospitalization)
  Sender: FDA-Public Use
  Company Number: FR-ALNYLAM PHARMACEUTICALS, INC.-ALN-2023-002724

PATIENT

DRUGS (1)
  1. ONPATTRO [Suspect]
     Active Substance: PATISIRAN SODIUM
     Indication: Product used for unknown indication
     Dosage: UNK
     Route: 042

REACTIONS (6)
  - Urinary retention [Unknown]
  - Pyrexia [Unknown]
  - Kidney infection [Unknown]
  - Prostatomegaly [Unknown]
  - Therapy interrupted [Unknown]
  - Dysstasia [Unknown]

NARRATIVE: CASE EVENT DATE: 20230608
